FAERS Safety Report 9337446 (Version 1)
Quarter: 2013Q2

REPORT INFORMATION
  Report Type: Spontaneous
  Country: US (occurrence: US)
  Receive Date: 20130607
  Receipt Date: 20130607
  Transmission Date: 20140414
  Serious: Yes (Hospitalization)
  Sender: FDA-Public Use
  Company Number: US-BRISTOL-MYERS SQUIBB COMPANY-18977868

PATIENT
  Age: 61 Year
  Sex: Female
  Weight: 90.7 kg

DRUGS (5)
  1. BYDUREON [Suspect]
     Indication: TYPE 2 DIABETES MELLITUS
     Route: 058
     Dates: end: 20130503
  2. DIOVAN HCT [Concomitant]
     Dosage: 1DF= 320/25MG
     Route: 048
  3. SPIRONOLACTONE [Concomitant]
     Route: 048
  4. METFORMIN [Concomitant]
     Route: 048
  5. SYNTHROID [Concomitant]
     Route: 048

REACTIONS (7)
  - Cholelithiasis [Unknown]
  - White blood cell count increased [Unknown]
  - Weight decreased [Unknown]
  - Nausea [Recovered/Resolved]
  - Diarrhoea [Recovered/Resolved]
  - Vomiting [Recovering/Resolving]
  - Decreased appetite [Recovering/Resolving]
